FAERS Safety Report 11356594 (Version 1)
Quarter: 2015Q3

REPORT INFORMATION
  Report Type: Spontaneous
  Country: US (occurrence: US)
  Receive Date: 20150803
  Receipt Date: 20150803
  Transmission Date: 20151125
  Serious: No
  Sender: FDA-Public Use
  Company Number: US-ELI_LILLY_AND_COMPANY-US201103007141

PATIENT
  Age: 57 Year
  Sex: Female

DRUGS (1)
  1. ZYPREXA [Suspect]
     Active Substance: OLANZAPINE
     Dosage: 15 MG, BID
     Dates: start: 20100929

REACTIONS (2)
  - Drooling [Unknown]
  - Overdose [Unknown]

NARRATIVE: CASE EVENT DATE: 20100929
